FAERS Safety Report 5053853-0 (Version None)
Quarter: 2006Q3

REPORT INFORMATION
  Report Type: 
  Country: None (occurrence: None)
  Receive Date: 20060718
  Receipt Date: 20060713
  Transmission Date: 20061208
  Serious: Yes (Hospitalization)
  Sender: FDA-Public Use
  Company Number: 453788

PATIENT
  Age: 65 Year
  Sex: Male

DRUGS (6)
  1. CARVEDILOL [Suspect]
     Dosage: 2.5MG PER DAY
     Route: 048
     Dates: start: 20031017
  2. LASIX [Concomitant]
     Dates: start: 20030917
  3. ALDACTONE [Concomitant]
     Dates: start: 20030917
  4. BLOPRESS [Concomitant]
     Dates: start: 20030917
  5. WARFARIN SODIUM [Concomitant]
     Dates: start: 20030917
  6. SALOBEL [Concomitant]
     Dates: start: 20031020

REACTIONS (3)
  - CEREBRAL INFARCTION [None]
  - DIPLOPIA [None]
  - LOSS OF CONSCIOUSNESS [None]
